FAERS Safety Report 22628320 (Version 1)
Quarter: 2023Q2

REPORT INFORMATION
  Report Type: Spontaneous
  Country: US (occurrence: US)
  Receive Date: 20230622
  Receipt Date: 20230622
  Transmission Date: 20230721
  Serious: Yes (Other)
  Sender: FDA-Public Use
  Company Number: US-APOTEX-2023AP009167

PATIENT
  Age: 47 Year
  Sex: Male

DRUGS (2)
  1. LITHIUM [Interacting]
     Active Substance: LITHIUM
     Indication: Product used for unknown indication
     Dosage: UNK
     Route: 065
  2. HERBALS\MITRAGYNINE [Interacting]
     Active Substance: HERBALS\MITRAGYNINE
     Indication: Drug abuse
     Dosage: UNK, IN 24 HOURS
     Route: 048

REACTIONS (4)
  - Unresponsive to stimuli [Unknown]
  - Drug abuse [Unknown]
  - Drug interaction [Unknown]
  - Lethargy [Unknown]
